FAERS Safety Report 6289677-6 (Version None)
Quarter: 2009Q3

REPORT INFORMATION
  Report Type: 
  Country: None (occurrence: None)
  Receive Date: 20090730
  Receipt Date: 20080611
  Transmission Date: 20100115
  Serious: No
  Sender: FDA-Public Use
  Company Number: US-BRISTOL-MYERS SQUIBB COMPANY-14224026

PATIENT
  Age: 75 Year
  Sex: Female

DRUGS (3)
  1. COUMADIN [Suspect]
     Indication: ARRHYTHMIA
  2. GLUCOTROL [Concomitant]
  3. ZESTRIL [Concomitant]

REACTIONS (1)
  - OEDEMA PERIPHERAL [None]
